FAERS Safety Report 9774380 (Version 1)
Quarter: 2013Q4

REPORT INFORMATION
  Report Type: Spontaneous
  Country: US (occurrence: None)
  Receive Date: 20131219
  Receipt Date: 20131219
  Transmission Date: 20140711
  Serious: Yes (Other)
  Sender: FDA-Public Use
  Company Number: None

PATIENT
  Age: 58 Year
  Sex: Male

DRUGS (1)
  1. FENTANYL [Suspect]
     Indication: PAIN
     Route: 062
     Dates: start: 20131205

REACTIONS (5)
  - Vomiting projectile [None]
  - Dyspnoea [None]
  - Hypotension [None]
  - Dizziness [None]
  - Incorrect drug administration rate [None]
